FAERS Safety Report 7772520-3 (Version None)
Quarter: 2011Q3

REPORT INFORMATION
  Report Type: 
  Country: None (occurrence: None)
  Receive Date: 20110922
  Receipt Date: 20110630
  Transmission Date: 20111222
  Serious: No
  Sender: FDA-Public Use
  Company Number: US-ASTRAZENECA-2011SE39336

PATIENT
  Age: 76 Year
  Sex: Female
  Weight: 68 kg

DRUGS (5)
  1. NAMENDA [Concomitant]
  2. SEROQUEL [Suspect]
     Route: 048
     Dates: start: 20110501
  3. EXELON [Concomitant]
  4. THEO-DUR [Concomitant]
     Indication: ASTHMA
  5. SEROQUEL [Suspect]
     Route: 048
     Dates: end: 20110501

REACTIONS (3)
  - ANGER [None]
  - DEMENTIA [None]
  - DRUG DOSE OMISSION [None]
